FAERS Safety Report 6617391-3 (Version None)
Quarter: 2010Q1

REPORT INFORMATION
  Report Type: 
  Country: None (occurrence: None)
  Receive Date: 20100307
  Receipt Date: 20100219
  Transmission Date: 20100710
  Serious: Yes (Other)
  Sender: FDA-Public Use
  Company Number: US-BAYER-201015212NA

PATIENT
  Sex: Male
  Weight: 81 kg

DRUGS (30)
  1. MAGNEVIST [Suspect]
     Indication: NUCLEAR MAGNETIC RESONANCE IMAGING BRAIN
     Dates: start: 20051026, end: 20051026
  2. MAGNEVIST [Suspect]
     Dates: start: 20060202, end: 20060202
  3. MAGNEVIST [Suspect]
     Dates: start: 20060421, end: 20060421
  4. MAGNEVIST [Suspect]
     Dates: start: 20070807, end: 20070807
  5. MAGNEVIST [Suspect]
     Dates: start: 20060914, end: 20060914
  6. MAGNEVIST [Suspect]
     Dates: start: 20070426, end: 20070426
  7. UNSPECIFIED GADOLINIUM [Suspect]
     Indication: NUCLEAR MAGNETIC RESONANCE IMAGING BRAIN
     Dates: start: 20030505, end: 20030505
  8. UNSPECIFIED GADOLINIUM [Suspect]
     Dates: start: 20040804, end: 20040804
  9. UNSPECIFIED GADOLINIUM [Suspect]
     Dates: start: 20070131, end: 20070131
  10. UNSPECIFIED GADOLINIUM [Suspect]
     Dates: start: 20060930, end: 20060930
  11. UNSPECIFIED GADOLINIUM [Suspect]
     Dates: start: 20040806, end: 20040806
  12. VENOFER [Concomitant]
  13. EPOGEN [Concomitant]
  14. PORK INSULIN [Concomitant]
  15. DIOVAN [Concomitant]
  16. CLONIDINE HCL [Concomitant]
  17. HYDROMORPHONE HCL [Concomitant]
  18. LABATALOL HCL [Concomitant]
  19. LASIX [Concomitant]
  20. KEPPRA [Concomitant]
  21. NEPHRO-VITE [Concomitant]
  22. NEXIUM [Concomitant]
  23. NORVASC [Concomitant]
  24. RENAGEL [Concomitant]
     Dosage: TOTAL DAILY DOSE: 2400 MG
     Route: 048
  25. OXYCONTIN [Concomitant]
  26. OXYFAST [Concomitant]
  27. REGLAN [Concomitant]
  28. TRAZODONE HCL [Concomitant]
  29. VALIUM [Concomitant]
  30. SENSIPAR [Concomitant]

REACTIONS (6)
  - ECCHYMOSIS [None]
  - NEPHROGENIC SYSTEMIC FIBROSIS [None]
  - OEDEMA PERIPHERAL [None]
  - PURPURA [None]
  - RASH [None]
  - SKIN HYPERPIGMENTATION [None]
